FAERS Safety Report 5805048-8 (Version None)
Quarter: 2008Q3

REPORT INFORMATION
  Report Type: 
  Country: None (occurrence: None)
  Receive Date: 20080709
  Receipt Date: 20080627
  Transmission Date: 20090109
  Serious: Yes (Other)
  Sender: FDA-Public Use
  Company Number: DE-PFIZER INC-2008055285

PATIENT
  Sex: Male

DRUGS (1)
  1. SUTENT [Suspect]
     Dosage: DAILY DOSE:37.5MG
     Route: 048
     Dates: start: 20080509, end: 20080602

REACTIONS (2)
  - ABASIA [None]
  - POLYNEUROPATHY [None]
